FAERS Safety Report 10433833 (Version 2)
Quarter: 2014Q3

REPORT INFORMATION
  Report Type: Spontaneous
  Country: US (occurrence: US)
  Receive Date: 20140905
  Receipt Date: 20140905
  Transmission Date: 20150326
  Serious: Yes (Hospitalization)
  Sender: FDA-Public Use
  Company Number: US-GLAXOSMITHKLINE-A0731208A

PATIENT
  Sex: Male
  Weight: 113.6 kg

DRUGS (2)
  1. ROSIGLITAZONE MALEATE. [Suspect]
     Active Substance: ROSIGLITAZONE MALEATE
     Indication: DIABETES MELLITUS
     Route: 048
     Dates: start: 20021003, end: 20061214
  2. AVANDIA [Suspect]
     Active Substance: ROSIGLITAZONE MALEATE
     Indication: TYPE 2 DIABETES MELLITUS
     Dosage: 4MG TWICE PER DAY
     Route: 048
     Dates: start: 20021002, end: 20070131

REACTIONS (13)
  - Pain [Unknown]
  - Injury [Unknown]
  - Liver injury [Unknown]
  - Anaemia [Unknown]
  - Cardiac valve disease [Unknown]
  - Cardiac failure congestive [Unknown]
  - Hepatotoxicity [Unknown]
  - Traumatic lung injury [Unknown]
  - Pleural effusion [Unknown]
  - Coronary artery disease [Unknown]
  - Renal failure chronic [Unknown]
  - Pericardial effusion [Unknown]
  - Cardiac disorder [Unknown]
